FAERS Safety Report 23736940 (Version 1)
Quarter: 2024Q2

REPORT INFORMATION
  Report Type: Spontaneous
  Country: US (occurrence: US)
  Receive Date: 20240412
  Receipt Date: 20240412
  Transmission Date: 20240716
  Serious: Yes (Hospitalization, Other)
  Sender: FDA-Public Use
  Company Number: US-SUN PHARMACEUTICAL INDUSTRIES LTD-2024R1-440631

PATIENT
  Sex: Male

DRUGS (7)
  1. AZITHROMYCIN [Suspect]
     Active Substance: AZITHROMYCIN
     Indication: Encephalitis
     Dosage: 500 MILLIGRAM, 1X/D
     Route: 048
  2. FLUCONAZOLE [Suspect]
     Active Substance: FLUCONAZOLE
     Indication: Encephalitis
     Dosage: 1000 MILLIGRAM, 1 X/D, 12 MG/KG
     Route: 048
  3. ALBENDAZOLE [Suspect]
     Active Substance: ALBENDAZOLE
     Indication: Encephalitis
     Dosage: 400 MILLIGRAM, 1X/D
     Route: 048
  4. FLUCYTOSINE [Suspect]
     Active Substance: FLUCYTOSINE
     Indication: Encephalitis
     Dosage: 3000 MILLIGRAM, 4 X/D, 37.5 MG/KG
     Route: 065
  5. MILTEFOSINE [Suspect]
     Active Substance: MILTEFOSINE
     Indication: Encephalitis
     Dosage: 50 MILLIGRAM, 3X/D
     Route: 048
  6. PENTAMIDINE [Suspect]
     Active Substance: PENTAMIDINE
     Indication: Encephalitis
     Dosage: 330 MILLIGRAM, 1X/D, 4 MG/KG
     Route: 042
  7. SULFADIAZINE [Suspect]
     Active Substance: SULFADIAZINE
     Indication: Encephalitis
     Dosage: 1500 MILLIGRAM 4 X/D
     Route: 048

REACTIONS (7)
  - Toxicity to various agents [Unknown]
  - Hypoglycaemia [Unknown]
  - Therapeutic response decreased [Unknown]
  - Condition aggravated [Unknown]
  - Renal failure [Recovering/Resolving]
  - Neutrophil count decreased [Unknown]
  - Disease progression [Unknown]
